FAERS Safety Report 17063611 (Version 2)
Quarter: 2020Q1

REPORT INFORMATION
  Report Type: Spontaneous
  Country: US (occurrence: US)
  Receive Date: 20191122
  Receipt Date: 20200303
  Transmission Date: 20200409
  Serious: No
  Sender: FDA-Public Use
  Company Number: US-GLENMARK PHARMACEUTICALS-2019GMK044282

PATIENT

DRUGS (4)
  1. SOLIFENACIN SUCCINATE TABLETS 10 MG [Suspect]
     Active Substance: SOLIFENACIN SUCCINATE
     Indication: PROSTATE CANCER
     Dosage: 1 DF, OD
     Route: 048
     Dates: start: 20191015
  2. VITAMIN D [Concomitant]
     Active Substance: VITAMIN D NOS
     Indication: VITAMIN SUPPLEMENTATION
     Dosage: UNK, OD
     Route: 048
  3. CARBIDOPA LEVODOPA [Concomitant]
     Active Substance: CARBIDOPA\LEVODOPA
     Indication: PARKINSON^S DISEASE
     Dosage: 1 DF, TID (START DATE: 18 MONTHS AGO)
     Route: 048
     Dates: start: 2017
  4. SERTRALINE [Concomitant]
     Active Substance: SERTRALINE HYDROCHLORIDE
     Indication: DEPRESSION
     Dosage: 3 DF, OD (RX- TO TAKE 4 TABLETS A DAY BUT HE WAS TAKING 3 TABLETS A DAY ONCE IN THE MORNING)
     Route: 048

REACTIONS (3)
  - Product label issue [Unknown]
  - Urinary incontinence [Not Recovered/Not Resolved]
  - Product substitution issue [Unknown]

NARRATIVE: CASE EVENT DATE: 201910
